FAERS Safety Report 5580686-9 (Version None)
Quarter: 2007Q4

REPORT INFORMATION
  Report Type: 
  Country: None (occurrence: None)
  Receive Date: 20071130
  Receipt Date: 20070706
  Transmission Date: 20080405
  Serious: No
  Sender: FDA-Public Use
  Company Number: US200707002422

PATIENT
  Age: 52 Year
  Sex: Female

DRUGS (2)
  1. BYETTA [Suspect]
     Indication: TYPE 2 DIABETES MELLITUS
     Dosage: 5 UG, 10 UG, SUBCUTANEOUS
     Route: 058
     Dates: start: 20070101
  2. METFORMIN HCL [Concomitant]

REACTIONS (4)
  - ALOPECIA [None]
  - BLOOD GLUCOSE INCREASED [None]
  - INJECTION SITE NODULE [None]
  - INJECTION SITE RASH [None]
